FAERS Safety Report 6617787-X (Version None)
Quarter: 2010Q1

REPORT INFORMATION
  Report Type: 
  Country: None (occurrence: None)
  Receive Date: 20100308
  Receipt Date: 20100302
  Transmission Date: 20100710
  Serious: Yes (Hospitalization, Other)
  Sender: FDA-Public Use
  Company Number: CA-BAYER-201015422NA

PATIENT
  Age: 43 Year
  Sex: Female
  Weight: 57 kg

DRUGS (1)
  1. YASMIN [Suspect]
     Indication: DRUG USE FOR UNKNOWN INDICATION
     Route: 048

REACTIONS (4)
  - BACK PAIN [None]
  - GALLBLADDER DISORDER [None]
  - MALAISE [None]
  - SURGERY [None]
